FAERS Safety Report 21917925 (Version 6)
Quarter: 2023Q2

REPORT INFORMATION
  Report Type: Spontaneous
  Country: JP (occurrence: JP)
  Receive Date: 20230127
  Receipt Date: 20230628
  Transmission Date: 20230722
  Serious: Yes (Hospitalization, Other)
  Sender: FDA-Public Use
  Company Number: JP-TAKEDA-2023TJP000659

PATIENT
  Age: 8 Decade
  Sex: Female

DRUGS (3)
  1. ALUNBRIG [Suspect]
     Active Substance: BRIGATINIB
     Indication: Lung neoplasm malignant
     Dosage: 90 MILLIGRAM, QD
     Route: 048
     Dates: start: 20221230
  2. ALUNBRIG [Suspect]
     Active Substance: BRIGATINIB
     Dosage: UNK
     Route: 048
     Dates: end: 202306
  3. ALUNBRIG [Suspect]
     Active Substance: BRIGATINIB
     Dosage: UNK
     Route: 048
     Dates: start: 202306

REACTIONS (5)
  - Pulmonary toxicity [Recovering/Resolving]
  - Cardiac failure [Recovering/Resolving]
  - Blood creatine phosphokinase increased [Recovering/Resolving]
  - Blood creatine phosphokinase increased [Unknown]
  - Nausea [Not Recovered/Not Resolved]

NARRATIVE: CASE EVENT DATE: 20230113
